FAERS Safety Report 5348864-1 (Version None)
Quarter: 2007Q2

REPORT INFORMATION
  Report Type: 
  Country: None (occurrence: None)
  Receive Date: 20070607
  Receipt Date: 20070525
  Transmission Date: 20071010
  Serious: Yes (Other)
  Sender: FDA-Public Use
  Company Number: PHBS2007US08860

PATIENT
  Age: 27 Year
  Sex: Female

DRUGS (2)
  1. DESFERRIOXAMINE MESYLATE [Suspect]
     Indication: HAEMOSIDEROSIS
     Dosage: 2.5 G 5 DAYS A WEEK
     Route: 058
     Dates: start: 20000901
  2. RED BLOOD CELLS [Concomitant]

REACTIONS (4)
  - CAESAREAN SECTION [None]
  - DRUG EXPOSURE DURING PREGNANCY [None]
  - PLACENTA PRAEVIA [None]
  - PREMATURE LABOUR [None]
